FAERS Safety Report 5748360-3 (Version None)
Quarter: 2008Q2

REPORT INFORMATION
  Report Type: 
  Country: None (occurrence: None)
  Receive Date: 20080523
  Receipt Date: 20080514
  Transmission Date: 20081010
  Serious: No
  Sender: FDA-Public Use
  Company Number: US-PFIZER INC-2008027027

PATIENT
  Sex: Female
  Weight: 56.2 kg

DRUGS (9)
  1. LYRICA [Suspect]
     Indication: PAIN
     Route: 048
     Dates: start: 20060124, end: 20071101
  2. LYRICA [Suspect]
     Indication: MYOFASCITIS
  3. LYRICA [Suspect]
     Indication: RADICULITIS
  4. ENDOCET [Concomitant]
  5. RITALIN [Concomitant]
  6. CYMBALTA [Concomitant]
  7. MAGNESIUM [Concomitant]
  8. PERCOCET [Concomitant]
  9. DURAGESIC-100 [Concomitant]

REACTIONS (4)
  - ARTHRALGIA [None]
  - HEADACHE [None]
  - JOINT RANGE OF MOTION DECREASED [None]
  - JOINT SWELLING [None]
